FAERS Safety Report 11031843 (Version 2)
Quarter: 2015Q2

REPORT INFORMATION
  Report Type: Spontaneous
  Country: JP (occurrence: JP)
  Receive Date: 20150415
  Receipt Date: 20150506
  Transmission Date: 20150821
  Serious: Yes (Death)
  Sender: FDA-Public Use
  Company Number: JP-PFIZER INC-2015128780

PATIENT
  Age: 80 Year
  Sex: Male

DRUGS (2)
  1. MEROPEN [Concomitant]
     Active Substance: MEROPENEM
     Dosage: 3 G, DAILY
  2. ZYVOX [Suspect]
     Active Substance: LINEZOLID
     Indication: STAPHYLOCOCCAL SEPSIS
     Dosage: 1200 MG, DAILY

REACTIONS (1)
  - Staphylococcal sepsis [Fatal]
